FAERS Safety Report 18289423 (Version 1)
Quarter: 2020Q3

REPORT INFORMATION
  Report Type: Spontaneous
  Country: GB (occurrence: GB)
  Receive Date: 20200921
  Receipt Date: 20200921
  Transmission Date: 20201103
  Serious: Yes (Other)
  Sender: FDA-Public Use
  Company Number: GB-SA-2020SA249425

PATIENT

DRUGS (1)
  1. APROVEL [Suspect]
     Active Substance: IRBESARTAN
     Dosage: 300 MG
     Route: 065

REACTIONS (3)
  - Product use complaint [Unknown]
  - Product size issue [Unknown]
  - Foreign body in throat [Unknown]
